FAERS Safety Report 23600826 (Version 1)
Quarter: 2024Q1

REPORT INFORMATION
  Report Type: Spontaneous
  Country: US (occurrence: US)
  Receive Date: 20240306
  Receipt Date: 20240306
  Transmission Date: 20240410
  Serious: No
  Sender: FDA-Public Use
  Company Number: US-SAMSUNG BIOEPIS-SB-2023-28764

PATIENT
  Sex: Female

DRUGS (1)
  1. HADLIMA [Suspect]
     Active Substance: ADALIMUMAB-BWWD
     Indication: Hidradenitis
     Dosage: UNKNOWN
     Route: 058

REACTIONS (3)
  - Injection site pain [Unknown]
  - Urticaria [Unknown]
  - Injection site haemorrhage [Recovered/Resolved]
